FAERS Safety Report 5616199-5 (Version None)
Quarter: 2008Q1

REPORT INFORMATION
  Report Type: 
  Country: None (occurrence: None)
  Receive Date: 20080206
  Receipt Date: 20080205
  Transmission Date: 20080703
  Serious: Yes (Hospitalization)
  Sender: FDA-Public Use
  Company Number: ES-MERCK-0802ESP00005

PATIENT
  Age: 85 Year
  Sex: Female

DRUGS (6)
  1. HYZAAR [Suspect]
     Indication: HYPERTENSION
     Route: 048
     Dates: end: 20070801
  2. CLOPIDOGREL BISULFATE [Suspect]
     Indication: HYPERTENSION
     Route: 048
     Dates: end: 20070801
  3. OMEPRAZOLE [Suspect]
     Route: 048
  4. CLOMETHIAZOLE EDISYLATE [Concomitant]
     Route: 048
     Dates: start: 20070301
  5. CARBIDOPA AND LEVODOPA [Concomitant]
     Indication: PARKINSON'S DISEASE
     Route: 048
  6. SIMVASTATIN [Concomitant]
     Indication: HYPERCHOLESTEROLAEMIA
     Route: 048

REACTIONS (2)
  - DRUG INTERACTION [None]
  - RENAL FAILURE ACUTE [None]
